FAERS Safety Report 6516827-6 (Version None)
Quarter: 2009Q4

REPORT INFORMATION
  Report Type: 
  Country: None (occurrence: None)
  Receive Date: 20091223
  Receipt Date: 20091215
  Transmission Date: 20100525
  Serious: Yes (Hospitalization)
  Sender: FDA-Public Use
  Company Number: PHHO2008US08832

PATIENT
  Age: 61 Year
  Sex: Male
  Weight: 109.5 kg

DRUGS (6)
  1. AFINITOR [Suspect]
     Indication: NON-SMALL CELL LUNG CANCER
     Dosage: 5MG
     Route: 048
     Dates: start: 20080623
  2. DECADRON [Suspect]
  3. NEXIUM [Concomitant]
  4. TRICOR [Concomitant]
  5. HYZAAR [Concomitant]
  6. XYZAL [Concomitant]

REACTIONS (4)
  - FATIGUE [None]
  - FEBRILE NEUTROPENIA [None]
  - MYALGIA [None]
  - OROPHARYNGEAL PAIN [None]
